FAERS Safety Report 6400002-X (Version None)
Quarter: 2009Q4

REPORT INFORMATION
  Report Type: 
  Country: None (occurrence: None)
  Receive Date: 20091014
  Receipt Date: 20091005
  Transmission Date: 20100525
  Serious: Yes (Other)
  Sender: FDA-Public Use
  Company Number: US-ELI_LILLY_AND_COMPANY-US200910001040

PATIENT
  Sex: Female

DRUGS (3)
  1. HUMULIN N [Suspect]
     Dosage: UNK, AS NEEDED
  2. HUMULIN R [Suspect]
  3. CORTICOSTEROIDS [Concomitant]
     Indication: SWELLING

REACTIONS (5)
  - BLOOD GLUCOSE DECREASED [None]
  - BLOOD GLUCOSE INCREASED [None]
  - BRAIN NEOPLASM [None]
  - BRAIN OPERATION [None]
  - SWELLING [None]
